FAERS Safety Report 20133749 (Version 1)
Quarter: 2021Q4

REPORT INFORMATION
  Report Type: Spontaneous
  Country: SK (occurrence: SK)
  Receive Date: 20211201
  Receipt Date: 20211201
  Transmission Date: 20220303
  Serious: Yes (Other)
  Sender: FDA-Public Use
  Company Number: SK-AMGEN-SVKSP2021187692

PATIENT
  Age: 59 Year
  Sex: Male

DRUGS (6)
  1. PEGFILGRASTIM [Suspect]
     Active Substance: PEGFILGRASTIM
     Indication: Prophylaxis
     Dosage: UNK, Q3WK
     Route: 065
     Dates: start: 20201004
  2. RITUXIMAB [Suspect]
     Active Substance: RITUXIMAB
     Indication: Follicular lymphoma
     Dosage: UNK UNK, Q3WK (TOTAL OF 8 CYCLES OF 21 DAYS EACH)
     Route: 065
     Dates: start: 20201002
  3. CYCLOPHOSPHAMIDE [Suspect]
     Active Substance: CYCLOPHOSPHAMIDE
     Indication: Follicular lymphoma
     Dosage: UNK UNK, Q3WK (TOTAL OF 8 CYCLES OF 21 DAYS EACH)
     Route: 065
     Dates: start: 20201002
  4. DOXORUBICIN [Suspect]
     Active Substance: DOXORUBICIN
     Indication: Follicular lymphoma
     Dosage: UNK UNK, Q3WK (TOTAL OF 8 CYCLES OF 21 DAYS EACH)
     Route: 065
     Dates: start: 20201002
  5. VINCRISTINE [Suspect]
     Active Substance: VINCRISTINE
     Indication: Follicular lymphoma
     Dosage: UNK UNK, Q3WK (TOTAL OF 8 CYCLES OF 21 DAYS EACH)
     Route: 065
     Dates: start: 20201002
  6. PREDNISONE [Suspect]
     Active Substance: PREDNISONE
     Indication: Follicular lymphoma
     Dosage: UNK UNK, Q3WK (TOTAL OF 8 CYCLES OF 21 DAYS EACH)
     Route: 065
     Dates: start: 20201002

REACTIONS (3)
  - Gastroenteritis clostridial [Unknown]
  - Urinary tract infection [Unknown]
  - Klebsiella test positive [Unknown]

NARRATIVE: CASE EVENT DATE: 20201001
